FAERS Safety Report 14426012 (Version 1)
Quarter: 2018Q1

REPORT INFORMATION
  Report Type: Spontaneous
  Country: US (occurrence: US)
  Receive Date: 20180123
  Receipt Date: 20180123
  Transmission Date: 20180509
  Serious: No
  Sender: FDA-Public Use
  Company Number: US-SIGMAPHARM LABORATORIES, LLC-2017SIG00055

PATIENT
  Age: 69 Year
  Sex: Female

DRUGS (2)
  1. LIOTHYRONINE SODIUM. [Suspect]
     Active Substance: LIOTHYRONINE SODIUM
     Dosage: 5 MCG, UNK
     Dates: start: 2015
  2. SYNTHROID [Suspect]
     Active Substance: LEVOTHYROXINE SODIUM
     Dosage: UNK

REACTIONS (2)
  - Palpitations [Unknown]
  - Anxiety [Unknown]

NARRATIVE: CASE EVENT DATE: 20171004
